FAERS Safety Report 7537912-6 (Version None)
Quarter: 2011Q2

REPORT INFORMATION
  Report Type: 
  Country: None (occurrence: None)
  Receive Date: 20110609
  Receipt Date: 20110602
  Transmission Date: 20111010
  Serious: Yes (Hospitalization)
  Sender: FDA-Public Use
  Company Number: LT-UCBSA-8046053

PATIENT
  Sex: Female
  Weight: 101 kg

DRUGS (14)
  1. CERTOLIZUMAB PEGOL [Suspect]
     Route: 058
     Dates: start: 20060530, end: 20071113
  2. MELOXICAM [Concomitant]
     Indication: RHEUMATOID ARTHRITIS
     Route: 048
     Dates: start: 20070321
  3. CERTOLIZUMAB PEGOL [Suspect]
     Route: 058
     Dates: start: 20090526, end: 20090609
  4. VERAPAMIL [Concomitant]
     Indication: HYPERTENSION
     Route: 048
     Dates: start: 20090218
  5. METHYLPREDNIZOLON [Concomitant]
     Indication: RHEUMATOID ARTHRITIS
     Route: 048
     Dates: start: 20070503
  6. FERROUS SULFATE TAB [Concomitant]
     Indication: ANAEMIA
     Route: 048
     Dates: start: 20090404
  7. OMEPRASOL [Concomitant]
     Indication: GASTRITIS
     Route: 048
     Dates: start: 20070321
  8. CERTOLIZUMAB PEGOL [Suspect]
     Indication: RHEUMATOID ARTHRITIS
     Dosage: - NR OF DOSES :26
     Route: 058
     Dates: start: 20050531, end: 20060516
  9. CERTOLIZUMAB PEGOL [Suspect]
     Route: 058
     Dates: start: 20080625, end: 20090414
  10. LOGEST [Concomitant]
     Indication: CONTRACEPTION
     Route: 048
     Dates: start: 20050320
  11. QUINAPRIL HCL [Concomitant]
     Indication: HYPERTENSION
     Route: 048
     Dates: start: 20081210
  12. CERTOLIZUMAB PEGOL [Suspect]
     Route: 058
     Dates: start: 20071127, end: 20080610
  13. METHOTREXATE [Concomitant]
     Indication: RHEUMATOID ARTHRITIS
     Route: 048
     Dates: start: 20040203
  14. SYMBICORT [Concomitant]
     Indication: ASTHMA
     Dosage: 4.5/160 MCG
     Route: 055
     Dates: start: 20090217

REACTIONS (2)
  - PNEUMONIA [None]
  - TUBERCULOSIS [None]
